FAERS Safety Report 4688710-2 (Version None)
Quarter: 2005Q2

REPORT INFORMATION
  Report Type: 
  Country: None (occurrence: None)
  Receive Date: 20050610
  Receipt Date: 20050610
  Transmission Date: 20051028
  Serious: Yes (Other)
  Sender: FDA-Public Use
  Company Number: None

PATIENT
  Age: 61 Year
  Sex: Male
  Weight: 138 kg

DRUGS (3)
  1. ATENOLOL [Suspect]
     Indication: HYPERTENSION
     Dosage: 50MG  QD   ORAL
     Route: 048
     Dates: start: 20030823, end: 20050423
  2. LISINOPRIL [Concomitant]
  3. MAXZIDE [Concomitant]

REACTIONS (2)
  - SINUS BRADYCARDIA [None]
  - WHEEZING [None]
